FAERS Safety Report 9297820 (Version 1)
Quarter: 2013Q2

REPORT INFORMATION
  Report Type: Spontaneous
  Country: GB (occurrence: GB)
  Receive Date: 20130520
  Receipt Date: 20130520
  Transmission Date: 20140414
  Serious: Yes (Other)
  Sender: FDA-Public Use
  Company Number: GB-JNJFOC-20130507042

PATIENT
  Age: 78 Year
  Sex: Male
  Weight: 98 kg

DRUGS (11)
  1. XARELTO [Suspect]
     Indication: ATRIAL FIBRILLATION
     Route: 048
     Dates: start: 20130311, end: 20130325
  2. XARELTO [Suspect]
     Indication: CEREBROVASCULAR ACCIDENT PROPHYLAXIS
     Route: 048
     Dates: start: 20130311, end: 20130325
  3. SIMVASTATIN [Concomitant]
     Route: 065
  4. LISINOPRIL [Concomitant]
     Route: 065
  5. TIOTROPIUM [Concomitant]
     Route: 065
  6. NOVOMIX [Concomitant]
     Route: 065
  7. SALBUTAMOL [Concomitant]
     Route: 065
  8. TEMAZEPAM [Concomitant]
     Route: 065
  9. LANSOPRAZOLE [Concomitant]
     Route: 065
  10. FUROSEMIDE [Concomitant]
     Route: 065
  11. METFORMIN [Concomitant]
     Route: 065

REACTIONS (3)
  - Pruritus [Recovering/Resolving]
  - Jaundice [Recovered/Resolved]
  - Skin discolouration [Recovering/Resolving]
